FAERS Safety Report 8407118-7 (Version None)
Quarter: 2012Q2

REPORT INFORMATION
  Report Type: 
  Country: None (occurrence: None)
  Receive Date: 20120604
  Receipt Date: 20120524
  Transmission Date: 20120825
  Serious: Yes (Hospitalization, Other)
  Sender: FDA-Public Use
  Company Number: FR-ASTRAZENECA-2012SE34053

PATIENT
  Age: 33 Year
  Sex: Male

DRUGS (4)
  1. QUETIAPINE FUMARATE [Suspect]
     Route: 048
     Dates: start: 20120123, end: 20120307
  2. QUETIAPINE FUMARATE [Suspect]
     Route: 048
     Dates: start: 20120308, end: 20120510
  3. QUETIAPINE FUMARATE [Suspect]
     Indication: SCHIZOPHRENIA
     Route: 048
     Dates: start: 20111205, end: 20120122
  4. BROMAZEPAM [Concomitant]
     Route: 048

REACTIONS (2)
  - HEPATIC STEATOSIS [None]
  - PSYCHIATRIC DECOMPENSATION [None]
